FAERS Safety Report 4447442-6 (Version None)
Quarter: 2004Q3

REPORT INFORMATION
  Report Type: 
  Country: None (occurrence: None)
  Receive Date: 20040913
  Receipt Date: 20040901
  Transmission Date: 20050211
  Serious: Yes (Other)
  Sender: FDA-Public Use
  Company Number: US-JNJFOC-20040901131

PATIENT
  Age: 55 Year
  Sex: Female

DRUGS (1)
  1. REMICADE [Suspect]
     Indication: CROHN'S DISEASE
     Dosage: ONE INFUSION
     Route: 042

REACTIONS (2)
  - ATRIAL FIBRILLATION [None]
  - INFUSION RELATED REACTION [None]
